FAERS Safety Report 7019512-X (Version None)
Quarter: 2010Q3

REPORT INFORMATION
  Report Type: 
  Country: None (occurrence: None)
  Receive Date: 20100923
  Receipt Date: 20090812
  Transmission Date: 20110219
  Serious: Yes (Disabling, Other)
  Sender: FDA-Public Use
  Company Number: 697594

PATIENT
  Age: 35 Year
  Sex: Male

DRUGS (5)
  1. CARBOPLATIN [Suspect]
     Indication: TESTIS CANCER
     Dosage: INTRAVENOUS
     Route: 042
     Dates: start: 20081124, end: 20090301
  2. ETOPOSIDE [Suspect]
     Indication: TESTIS CANCER
     Dosage: INTRAVENOUS
     Route: 042
     Dates: start: 20081104, end: 20090310
  3. CISPLATIN [Suspect]
     Indication: TESTIS CANCER
     Dosage: STOPPED DURING NOVEMBER 2004, INTRAVENOUS
     Route: 042
     Dates: start: 20081104
  4. PREDNISOLONE [Suspect]
     Indication: PRODUCT USED FOR UNKNOWN INDICATION
  5. BLEOMYCIN SULFATE [Suspect]
     Indication: TESTIS CANCER
     Dosage: INTRAVENOUS
     Route: 042
     Dates: start: 20081104

REACTIONS (2)
  - LUNG INFILTRATION [None]
  - PULMONARY FIBROSIS [None]
